FAERS Safety Report 25466652 (Version 1)
Quarter: 2025Q2

REPORT INFORMATION
  Report Type: Spontaneous
  Country: US (occurrence: US)
  Receive Date: 20250623
  Receipt Date: 20250623
  Transmission Date: 20250717
  Serious: Yes (Other)
  Sender: COOPERSURGICAL
  Company Number: US-COOPERSURGICAL, INC.-2025CPS005009

PATIENT
  Age: 42 Year
  Sex: Female
  Weight: 81.633 kg

DRUGS (1)
  1. PARAGARD T 380A [Suspect]
     Active Substance: COPPER
     Indication: Contraception
     Route: 015
     Dates: start: 20161216

REACTIONS (23)
  - Ovarian cyst [Not Recovered/Not Resolved]
  - Hysterectomy [Recovered/Resolved]
  - Device breakage [Recovered/Resolved]
  - Foreign body in reproductive tract [Recovered/Resolved]
  - Complication of device removal [Recovered/Resolved]
  - Embedded device [Recovered/Resolved]
  - Cervical cyst [Not Recovered/Not Resolved]
  - Breast cyst [Unknown]
  - Emotional disorder [Unknown]
  - Breast tenderness [Not Recovered/Not Resolved]
  - Headache [Unknown]
  - Rash [Unknown]
  - Nausea [Unknown]
  - Dyschezia [Recovered/Resolved]
  - Stress [Not Recovered/Not Resolved]
  - Anxiety [Not Recovered/Not Resolved]
  - Exercise tolerance decreased [Recovered/Resolved]
  - Heavy menstrual bleeding [Unknown]
  - Menstruation irregular [Unknown]
  - Device dislocation [Recovered/Resolved]
  - Abnormal uterine bleeding [Unknown]
  - Dyspareunia [Not Recovered/Not Resolved]
  - Abdominal pain [Unknown]

NARRATIVE: CASE EVENT DATE: 20221116
